FAERS Safety Report 9817997 (Version 1)
Quarter: 2014Q1

REPORT INFORMATION
  Report Type: Report from Study
  Country: US (occurrence: US)
  Receive Date: 20140115
  Receipt Date: 20140115
  Transmission Date: 20141002
  Serious: Yes (Death)
  Sender: FDA-Public Use
  Company Number: US-ROCHE-1330590

PATIENT
  Sex: Male

DRUGS (5)
  1. AVASTIN [Suspect]
     Indication: CHOLANGIOCARCINOMA
     Dosage: 21/JUN/2011, 03/MAY/2011, 05/APR/2011, 31/MAY/2011, 12/JUL/2011, 02/AUG/2011
     Route: 042
  2. AVASTIN [Suspect]
     Indication: METASTASES TO LIVER
  3. AVASTIN [Suspect]
     Indication: CHOLANGIOCARCINOMA
  4. TEMSIROLIMUS [Concomitant]
     Dosage: 21/JUN/2011, 03/MAY/2011, 05/APR/2011
     Route: 042
  5. NACL .9% [Concomitant]
     Dosage: 21/JUN/2011, 03/MAY/2011, 05/APR/2011
     Route: 065

REACTIONS (3)
  - Disease progression [Fatal]
  - Groin pain [Unknown]
  - Off label use [Unknown]
